FAERS Safety Report 7554593-6 (Version None)
Quarter: 2011Q2

REPORT INFORMATION
  Report Type: 
  Country: None (occurrence: None)
  Receive Date: 20110617
  Receipt Date: 20110607
  Transmission Date: 20111010
  Serious: Yes (Life-Threatening, Hospitalization)
  Sender: FDA-Public Use
  Company Number: US-ROCHE-782658

PATIENT
  Sex: Female

DRUGS (3)
  1. CARBOPLATIN [Suspect]
     Indication: OVARIAN EPITHELIAL CANCER
     Dosage: 6 AUC ON DAY 1
     Route: 042
     Dates: start: 20101007
  2. BEVACIZUMAB [Suspect]
     Indication: OVARIAN EPITHELIAL CANCER
     Dosage: OVER 30 - 90 MINS
     Route: 042
     Dates: start: 20101007
  3. PACLITAXEL [Suspect]
     Indication: OVARIAN EPITHELIAL CANCER
     Dosage: OVER 1 HOUR ON DAY 1, 8 AND 15
     Route: 042
     Dates: start: 20101007

REACTIONS (12)
  - FEBRILE NEUTROPENIA [None]
  - DEHYDRATION [None]
  - HYPOKALAEMIA [None]
  - NAUSEA [None]
  - WHITE BLOOD CELL COUNT DECREASED [None]
  - NEUTROPHIL COUNT DECREASED [None]
  - PROTEIN URINE PRESENT [None]
  - HYPERNATRAEMIA [None]
  - HAEMOGLOBIN DECREASED [None]
  - PELVIC INFECTION [None]
  - HYPOPHOSPHATAEMIA [None]
  - VOMITING [None]
